FAERS Safety Report 22261915 (Version 1)
Quarter: 2023Q2

REPORT INFORMATION
  Report Type: Spontaneous
  Country: US (occurrence: US)
  Receive Date: 20230428
  Receipt Date: 20230428
  Transmission Date: 20230722
  Serious: Yes (Death, Hospitalization, Other)
  Sender: FDA-Public Use
  Company Number: US-PROCTER+GAMBLE-PH23003838

PATIENT
  Age: 78 Year
  Sex: Female

DRUGS (1)
  1. PEPTO-BISMOL NOS [Suspect]
     Active Substance: BISMUTH SUBSALICYLATE OR CALCIUM CARBONATE
     Dosage: UNK
     Route: 048

REACTIONS (5)
  - Multiple organ dysfunction syndrome [Fatal]
  - Renal failure [Fatal]
  - Gastrointestinal haemorrhage [Unknown]
  - Gastrointestinal pain [Unknown]
  - Incorrect product administration duration [Unknown]
